FAERS Safety Report 4968205-9 (Version None)
Quarter: 2006Q2

REPORT INFORMATION
  Report Type: 
  Country: None (occurrence: None)
  Receive Date: 20060410
  Receipt Date: 20050407
  Transmission Date: 20061013
  Serious: Yes (Hospitalization)
  Sender: FDA-Public Use
  Company Number: 200511262FR

PATIENT
  Age: 54 Year
  Sex: Male
  Weight: 128 kg

DRUGS (4)
  1. KETEK [Suspect]
     Indication: BRONCHIAL DISORDER
     Route: 048
     Dates: start: 20041029, end: 20041118
  2. PYOSTACINE [Suspect]
     Indication: BRONCHIAL DISORDER
     Route: 048
     Dates: start: 20041118, end: 20041126
  3. PYOSTACINE [Concomitant]
     Route: 048
     Dates: start: 20041118, end: 20041126
  4. AUGMENTIN '125' [Concomitant]
     Indication: BRONCHIAL DISORDER
     Route: 048
     Dates: start: 20041126, end: 20041203

REACTIONS (12)
  - ACUTE RESPIRATORY DISTRESS SYNDROME [None]
  - ASCITES [None]
  - DEHYDRATION [None]
  - DRUG RASH WITH EOSINOPHILIA AND SYSTEMIC SYMPTOMS [None]
  - EOSINOPHILIA [None]
  - ERYTHEMA [None]
  - HEPATOMEGALY [None]
  - HYPERGLYCAEMIA [None]
  - HYPERSENSITIVITY [None]
  - LEUKOCYTOSIS [None]
  - RENAL FAILURE ACUTE [None]
  - TOXIC SKIN ERUPTION [None]
